FAERS Safety Report 5150137-7 (Version None)
Quarter: 2006Q4

REPORT INFORMATION
  Report Type: 
  Country: None (occurrence: None)
  Receive Date: 20061109
  Receipt Date: 20061109
  Transmission Date: 20070319
  Serious: Yes (Other)
  Sender: FDA-Public Use
  Company Number: None

PATIENT
  Sex: Female
  Weight: 89.8122 kg

DRUGS (2)
  1. CARISOPRODOL [Suspect]
     Indication: MUSCLE SPASMS
     Dosage: 350 MG TID ORAL
     Route: 048
     Dates: start: 20061013, end: 20061013
  2. TOPAMAX [Concomitant]

REACTIONS (4)
  - FLUSHING [None]
  - FURUNCLE [None]
  - PRURITUS [None]
  - RASH GENERALISED [None]
